FAERS Safety Report 5112872-6 (Version None)
Quarter: 2006Q3

REPORT INFORMATION
  Report Type: 
  Country: None (occurrence: None)
  Receive Date: 20060922
  Receipt Date: 20060913
  Transmission Date: 20061208
  Serious: Yes (Death, Hospitalization)
  Sender: FDA-Public Use
  Company Number: PHBS2006JP14101

PATIENT
  Age: 80 Year
  Sex: Male

DRUGS (2)
  1. CYCLOSPORINE [Suspect]
     Route: 048
     Dates: start: 20040901
  2. ADRENOCORTICOTROPHIC HORMONE [Concomitant]
     Route: 048
     Dates: start: 20040901

REACTIONS (2)
  - INFECTION [None]
  - RENAL IMPAIRMENT [None]
